FAERS Safety Report 9717090 (Version 2)
Quarter: 2013Q4

REPORT INFORMATION
  Report Type: Spontaneous
  Country: US (occurrence: US)
  Receive Date: 20131127
  Receipt Date: 20131127
  Transmission Date: 20140711
  Serious: No
  Sender: FDA-Public Use
  Company Number: US-GILEAD-2009-0020038

PATIENT
  Sex: Male
  Weight: 86.18 kg

DRUGS (10)
  1. LETAIRIS [Suspect]
     Indication: PULMONARY ARTERIAL HYPERTENSION
     Route: 047
     Dates: start: 20090126
  2. COUMADIN [Concomitant]
  3. COREG [Concomitant]
  4. LASIX [Concomitant]
  5. ALBUTEROL INHALER [Concomitant]
  6. PREDNISONE [Concomitant]
  7. DIOVAN [Concomitant]
  8. IMDUR [Concomitant]
  9. PLAVIX [Concomitant]
  10. ZETIA [Concomitant]

REACTIONS (3)
  - Insomnia [Unknown]
  - Oedema [Unknown]
  - Dyspnoea [Unknown]
